FAERS Safety Report 4481039-7 (Version None)
Quarter: 2004Q3

REPORT INFORMATION
  Report Type: 
  Country: None (occurrence: None)
  Receive Date: 20040923
  Receipt Date: 20040709
  Transmission Date: 20050211
  Serious: No
  Sender: FDA-Public Use
  Company Number: USA030845446

PATIENT
  Age: 81 Year
  Sex: Female
  Weight: 43 kg

DRUGS (8)
  1. FORTEO [Suspect]
     Indication: BONE DENSITY DECREASED
     Dates: start: 20030822
  2. FORTEO [Suspect]
     Indication: MULTIPLE FRACTURES
     Dates: start: 20030822
  3. FORTEO [Suspect]
     Indication: OSTEOPOROSIS
     Dates: start: 20030822
  4. ADVIL [Concomitant]
  5. THYROID TAB [Concomitant]
  6. CENTRUM [Concomitant]
  7. VITAMIN [Concomitant]
  8. NAPROSYN [Concomitant]

REACTIONS (8)
  - ARTHRALGIA [None]
  - ASTHENIA [None]
  - BACK PAIN [None]
  - BREAST TENDERNESS [None]
  - CONSTIPATION [None]
  - CYSTITIS [None]
  - MUSCLE CRAMP [None]
  - WEIGHT DECREASED [None]
